FAERS Safety Report 24996745 (Version 1)
Quarter: 2025Q1

REPORT INFORMATION
  Report Type: Spontaneous
  Country: FR (occurrence: FR)
  Receive Date: 20250221
  Receipt Date: 20250221
  Transmission Date: 20250409
  Serious: Yes (Hospitalization, Other)
  Sender: MERCK SHARP & DOHME LLC
  Company Number: FR-Accord-467155

PATIENT
  Age: 37 Year
  Sex: Male
  Weight: 71 kg

DRUGS (23)
  1. TEMOZOLOMIDE [Suspect]
     Active Substance: TEMOZOLOMIDE
     Indication: Ewing^s sarcoma
     Dosage: 100 MG/M2, Q3WEEKS
     Dates: start: 20240708, end: 20240708
  2. TEMOZOLOMIDE [Suspect]
     Active Substance: TEMOZOLOMIDE
     Indication: Ewing^s sarcoma
     Dosage: 100 MG/M2, Q3WEEKS
     Dates: start: 20250103, end: 20250103
  3. PHLOROGLUCINOL [Concomitant]
     Active Substance: PHLOROGLUCINOL
     Dates: start: 20240719
  4. MONTMORILLONITE [Concomitant]
     Active Substance: MONTMORILLONITE
     Dates: start: 20240710
  5. ATROPINE [Concomitant]
     Active Substance: ATROPINE
     Dates: start: 20240729
  6. ONCTOSE [Concomitant]
     Dates: start: 20240710
  7. LEVOTHYROXINE [Concomitant]
     Active Substance: LEVOTHYROXINE
     Dates: start: 202304
  8. TADALAFIL [Concomitant]
     Active Substance: TADALAFIL
     Dates: start: 20241106
  9. FILGRASTIM [Concomitant]
     Active Substance: FILGRASTIM
     Dates: start: 20240729
  10. DIPROSONE [Concomitant]
     Active Substance: BETAMETHASONE DIPROPIONATE
     Dates: start: 20240710
  11. SODIUM BICARBONATE [Concomitant]
     Active Substance: SODIUM BICARBONATE
     Dates: start: 20020710
  12. METHYLPREDNISOLONE [Concomitant]
     Active Substance: METHYLPREDNISOLONE
     Dates: start: 20240709
  13. VALACYCLOVIR HYDROCHLORIDE [Concomitant]
     Active Substance: VALACYCLOVIR HYDROCHLORIDE
     Dates: start: 202310
  14. RACECADOTRIL [Concomitant]
     Active Substance: RACECADOTRIL
     Dates: start: 20240710
  15. BACTRIM [Concomitant]
     Active Substance: SULFAMETHOXAZOLE\TRIMETHOPRIM
     Dates: start: 202310
  16. CEFIXIM [Concomitant]
     Active Substance: CEFIXIME
     Dates: start: 20240710
  17. TRIMEBUTINE MALEATE [Concomitant]
     Active Substance: TRIMEBUTINE MALEATE
     Dates: start: 20240719
  18. LOPERAMIDE [Concomitant]
     Active Substance: LOPERAMIDE
     Dates: start: 20240710
  19. DESLORATADINE [Concomitant]
     Active Substance: DESLORATADINE
  20. ONDANSETRON [Concomitant]
     Active Substance: ONDANSETRON
     Dates: start: 20240708
  21. LEVOTHYROXINE SODIUM\LIOTHYRONINE SODIUM [Concomitant]
     Active Substance: LEVOTHYROXINE SODIUM\LIOTHYRONINE SODIUM
     Dates: start: 20230428
  22. IRINOTECAN [Suspect]
     Active Substance: IRINOTECAN
     Indication: Ewing^s sarcoma
     Dosage: 37.5 MG/M2, Q3WEEKS
     Dates: start: 20250103, end: 20250103
  23. IRINOTECAN [Suspect]
     Active Substance: IRINOTECAN
     Indication: Ewing^s sarcoma
     Dosage: 50 MG/M2, Q3WEEKS
     Dates: start: 20240708, end: 20240708

REACTIONS (1)
  - Enteritis [Not Recovered/Not Resolved]

NARRATIVE: CASE EVENT DATE: 20250104
